FAERS Safety Report 8351780-4 (Version None)
Quarter: 2012Q2

REPORT INFORMATION
  Report Type: 
  Country: None (occurrence: None)
  Receive Date: 20120511
  Receipt Date: 20120503
  Transmission Date: 20120825
  Serious: No
  Sender: FDA-Public Use
  Company Number: US-BIOGENIDEC-2012BI015956

PATIENT
  Age: 30 Year
  Sex: Male

DRUGS (2)
  1. TYSABRI [Suspect]
     Indication: MULTIPLE SCLEROSIS
     Route: 042
     Dates: start: 20070723, end: 20091217
  2. TYSABRI [Suspect]
     Route: 042
     Dates: start: 20070723

REACTIONS (5)
  - NERVOUS SYSTEM DISORDER [None]
  - DIZZINESS [None]
  - ERYTHEMA [None]
  - DIARRHOEA [None]
  - FEELING COLD [None]
